FAERS Safety Report 5828635-X (Version None)
Quarter: 2008Q3

REPORT INFORMATION
  Report Type: 
  Country: None (occurrence: None)
  Receive Date: 20080731
  Receipt Date: 20080721
  Transmission Date: 20090109
  Serious: Yes (Hospitalization)
  Sender: FDA-Public Use
  Company Number: B0524562A

PATIENT
  Age: 45 Year
  Sex: Male
  Weight: 87 kg

DRUGS (2)
  1. ARIXTRA [Suspect]
     Indication: DEEP VEIN THROMBOSIS
     Dosage: 7.5MG PER DAY
     Route: 058
     Dates: start: 20080411, end: 20080416
  2. PREVISCAN [Suspect]
     Indication: DEEP VEIN THROMBOSIS
     Dosage: 20MG PER DAY
     Route: 048
     Dates: start: 20080411, end: 20080416

REACTIONS (4)
  - COMPARTMENT SYNDROME [None]
  - MUSCLE HAEMORRHAGE [None]
  - OEDEMA PERIPHERAL [None]
  - PAIN IN EXTREMITY [None]
